FAERS Safety Report 8790226 (Version 2)
Quarter: 2012Q4

REPORT INFORMATION
  Report Type: 
  Country: US (occurrence: US)
  Receive Date: 20120917
  Receipt Date: 20120928
  Transmission Date: 20130627
  Serious: No
  Sender: FDA-Public Use
  Company Number: US-JNJFOC-20120904563

PATIENT
  Age: 62 Year
  Sex: Female
  Weight: 77.11 kg

DRUGS (3)
  1. EXTRA STRENGTH TYLENOL PM [Suspect]
     Indication: PAIN
     Dosage: 2 caplets, twice a day
     Route: 048
     Dates: start: 201206
  2. ALLOPURINOL [Concomitant]
     Indication: GOUT
     Dosage: since 8 years
     Route: 065
     Dates: start: 2004
  3. COLCHICINE [Concomitant]
     Indication: GOUT
     Dosage: since 8 years
     Route: 065
     Dates: start: 2004

REACTIONS (2)
  - Psychomotor hyperactivity [Not Recovered/Not Resolved]
  - Intentional drug misuse [Unknown]
